FAERS Safety Report 5072899-X (Version None)
Quarter: 2006Q3

REPORT INFORMATION
  Report Type: 
  Country: None (occurrence: None)
  Receive Date: 20060807
  Receipt Date: 20060801
  Transmission Date: 20061208
  Serious: Yes (Hospitalization)
  Sender: FDA-Public Use
  Company Number: GB-BOEHRINGER INGELHEIM PHARMACEUTICALS, INC.-2006-UK-03375UK

PATIENT
  Age: 73 Year

DRUGS (6)
  1. DIPYRIDAMOLE [Suspect]
     Indication: CEREBROVASCULAR ACCIDENT
     Route: 048
     Dates: end: 20060616
  2. ASPIRIN (REFERENCE) [Suspect]
     Indication: CEREBROVASCULAR ACCIDENT
     Route: 048
  3. GTN-S [Concomitant]
     Dosage: 2 AS NECESSARY
     Route: 060
  4. LISINOPRIL [Concomitant]
     Indication: BLOOD PRESSURE INCREASED
     Route: 048
  5. PRAVASTATIN [Concomitant]
     Route: 048
  6. RANITIDINE [Concomitant]
     Route: 048

REACTIONS (5)
  - ABDOMINAL PAIN [None]
  - DUODENITIS [None]
  - HIATUS HERNIA [None]
  - OESOPHAGEAL ULCER [None]
  - VOMITING [None]
